FAERS Safety Report 6457796-7 (Version None)
Quarter: 2009Q4

REPORT INFORMATION
  Report Type: 
  Country: None (occurrence: None)
  Receive Date: 20091125
  Receipt Date: 20091116
  Transmission Date: 20100525
  Serious: Yes (Hospitalization)
  Sender: FDA-Public Use
  Company Number: US-ABBOTT-09P-163-0601693-04

PATIENT
  Sex: Female

DRUGS (26)
  1. HUMIRA [Suspect]
     Indication: CROHN'S DISEASE
     Route: 058
  2. REMERON [Concomitant]
     Indication: POST-TRAUMATIC STRESS DISORDER
     Dates: start: 20070601
  3. REMERON [Concomitant]
     Indication: GASTROINTESTINAL PAIN
  4. ATIVAN [Concomitant]
     Indication: POST-TRAUMATIC STRESS DISORDER
     Dates: start: 20040601
  5. TYLENOL (CAPLET) [Concomitant]
     Indication: ARTHRALGIA
     Dates: start: 20030901
  6. PREDNISONE TAB [Concomitant]
     Indication: CROHN'S DISEASE
     Dosage: 30MG TAPERED TO 15MG
     Dates: start: 20080401, end: 20080501
  7. PREDNISONE TAB [Concomitant]
     Dates: start: 20081101, end: 20090101
  8. PREDNISONE TAB [Concomitant]
     Route: 048
     Dates: start: 20090501, end: 20090801
  9. DONNATAL [Concomitant]
     Indication: ABDOMINAL PAIN
     Dates: start: 20081101, end: 20081201
  10. DESIPRAMINE [Concomitant]
     Indication: DEPRESSION
     Dates: start: 20090101, end: 20090201
  11. CIPROFLOXACIN [Concomitant]
     Indication: INFECTION PROPHYLAXIS
     Dates: start: 20081101, end: 20081201
  12. SUBOXONE [Concomitant]
     Indication: ABDOMINAL PAIN
     Dosage: 2-0.5MG
     Dates: start: 20090601
  13. FENTANYL-100 [Concomitant]
     Indication: ABDOMINAL PAIN
     Dates: start: 20081201, end: 20090501
  14. OMEPRAZOLE [Concomitant]
     Indication: GASTRITIS PROPHYLAXIS
     Dates: start: 20090319
  15. COUMADIN [Concomitant]
     Indication: DEEP VEIN THROMBOSIS
     Dates: start: 20081201, end: 20090601
  16. DILAUDID [Concomitant]
     Indication: ABDOMINAL PAIN
     Dates: start: 20081201, end: 20090501
  17. VITAMIN D [Concomitant]
     Indication: VITAMIN D DEFICIENCY
     Dates: start: 20081101
  18. ROWASA [Concomitant]
     Indication: CROHN'S DISEASE
     Dates: start: 20081101, end: 20090501
  19. LIDOCAINE [Concomitant]
     Indication: ABDOMINAL PAIN
     Route: 062
     Dates: start: 20081101
  20. MIRALAX [Concomitant]
     Indication: CONSTIPATION
     Dates: start: 20081101
  21. GABAPENTIN [Concomitant]
     Indication: ABDOMINAL PAIN
     Dates: start: 20090401, end: 20090601
  22. COLACE [Concomitant]
     Indication: CONSTIPATION
     Dates: start: 20081101
  23. CYMBALTA [Concomitant]
     Indication: ABDOMINAL PAIN
     Dates: start: 20081101, end: 20081201
  24. CEPHALEXIN [Concomitant]
     Indication: SKIN INFECTION
     Dates: start: 20090904
  25. CLONIDINE [Concomitant]
     Indication: DRUG WITHDRAWAL SYNDROME
     Dates: start: 20090529, end: 20090530
  26. XANAX [Concomitant]
     Indication: ANXIETY
     Dates: start: 20040601

REACTIONS (3)
  - ABDOMINAL PAIN [None]
  - CELLULITIS [None]
  - HIDRADENITIS [None]
